FAERS Safety Report 14853186 (Version 1)
Quarter: 2018Q2

REPORT INFORMATION
  Report Type: Spontaneous
  Country: JP (occurrence: US)
  Receive Date: 20180507
  Receipt Date: 20180507
  Transmission Date: 20180711
  Serious: Yes (Hospitalization)
  Sender: FDA-Public Use
  Company Number: US-ORPHAN EUROPE-2047306

PATIENT
  Age: 19 Year
  Sex: Male

DRUGS (15)
  1. CARBAGLU [Suspect]
     Active Substance: CARGLUMIC ACID
     Indication: HYPERAMMONAEMIA
     Route: 048
     Dates: start: 20170110
  2. ADSORBIN [Concomitant]
     Active Substance: ALUMINUM SILICATE
     Route: 048
  3. ONON [Concomitant]
     Active Substance: PRANLUKAST
     Route: 048
  4. GASTER [Concomitant]
     Active Substance: FAMOTIDINE
     Route: 048
  5. L CARTIN [Concomitant]
     Active Substance: LEVOCARNITINE HYDROCHLORIDE
     Route: 048
  6. ASCORBIC ACID. [Concomitant]
     Active Substance: ASCORBIC ACID
     Route: 048
  7. ZADITEN [Concomitant]
     Active Substance: KETOTIFEN FUMARATE
     Route: 048
  8. GLUCOSE [Concomitant]
     Active Substance: DEXTROSE
     Route: 048
  9. LOPEMIN [Concomitant]
     Active Substance: LOPERAMIDE HYDROCHLORIDE
     Route: 048
  10. SODIUM BENZOATE [Concomitant]
     Active Substance: SODIUM BENZOATE
     Route: 048
  11. BIOTIN [Concomitant]
     Active Substance: BIOTIN
     Route: 048
  12. ALINAMIN F [Concomitant]
     Active Substance: FURSULTIAMINE HYDROCHLORIDE
     Route: 048
  13. NEUQUINON [Concomitant]
     Active Substance: UBIDECARENONE
     Route: 048
  14. ENSURE [Concomitant]
     Active Substance: AMINO ACIDS\DEXTROSE\ELECTROLYTES NOS\SOYBEAN OIL\VITAMINS
  15. MIYA-BM [Concomitant]
     Active Substance: CLOSTRIDIUM BUTYRICUM SPORES STRAIN M-55
     Route: 048

REACTIONS (3)
  - Condition aggravated [Recovering/Resolving]
  - Vomiting [Recovering/Resolving]
  - Upper respiratory tract inflammation [Recovering/Resolving]

NARRATIVE: CASE EVENT DATE: 20180424
